FAERS Safety Report 20815548 (Version 2)
Quarter: 2022Q2

REPORT INFORMATION
  Report Type: Report from Study
  Country: US (occurrence: US)
  Receive Date: 20220511
  Receipt Date: 20220526
  Transmission Date: 20220721
  Serious: Yes (Hospitalization, Other)
  Sender: FDA-Public Use
  Company Number: US-ABBVIE-22K-163-4389460-00

PATIENT
  Age: 83 Year
  Sex: Female

DRUGS (3)
  1. IMBRUVICA [Suspect]
     Active Substance: IBRUTINIB
     Indication: Product used for unknown indication
     Dosage: MISSED THREE DOSES IN PAST THREE MONTHS
     Route: 048
     Dates: start: 20191227, end: 2022
  2. RIVASTIGMINE [Concomitant]
     Active Substance: RIVASTIGMINE
     Indication: Product used for unknown indication
  3. MEMANTINE [Concomitant]
     Active Substance: MEMANTINE
     Indication: Product used for unknown indication

REACTIONS (10)
  - Cerebral haemorrhage [Unknown]
  - Central nervous system lesion [Unknown]
  - Hospitalisation [Unknown]
  - Dementia Alzheimer^s type [Unknown]
  - Foot fracture [Unknown]
  - Head injury [Unknown]
  - Syncope [Unknown]
  - Drug interaction [Unknown]
  - Fatigue [Recovering/Resolving]
  - Fall [Unknown]

NARRATIVE: CASE EVENT DATE: 20201206
